FAERS Safety Report 14684069 (Version 2)
Quarter: 2019Q1

REPORT INFORMATION
  Report Type: Spontaneous
  Country: US (occurrence: US)
  Receive Date: 20180327
  Receipt Date: 20190304
  Transmission Date: 20190417
  Serious: Yes (Other)
  Sender: FDA-Public Use
  Company Number: US-GLAXOSMITHKLINE-US2018GSK051317

PATIENT
  Sex: Female

DRUGS (1)
  1. PREVACID [Suspect]
     Active Substance: LANSOPRAZOLE
     Indication: GASTROOESOPHAGEAL REFLUX DISEASE
     Dosage: 15 MG, UNK
     Route: 065

REACTIONS (7)
  - Diabetic nephropathy [Unknown]
  - Dysuria [Unknown]
  - Chronic kidney disease [Unknown]
  - Nephropathy [Unknown]
  - Nephrotic syndrome [Unknown]
  - Haematuria [Unknown]
  - Proteinuria [Unknown]
